FAERS Safety Report 9925651 (Version 2)
Quarter: 2014Q3

REPORT INFORMATION
  Report Type: Spontaneous
  Country: US (occurrence: US)
  Receive Date: 20140226
  Receipt Date: 20140912
  Transmission Date: 20150326
  Serious: Yes (Hospitalization)
  Sender: FDA-Public Use
  Company Number: US-GLAXOSMITHKLINE-A1062437A

PATIENT
  Age: 37 Year
  Sex: Male

DRUGS (3)
  1. ALBUTEROL. [Concomitant]
     Active Substance: ALBUTEROL
  2. ADVAIR HFA [Suspect]
     Active Substance: FLUTICASONE PROPIONATE\SALMETEROL XINAFOATE
     Indication: ASTHMA
     Dosage: 1PUFF TWICE PER DAY
     Route: 065
     Dates: start: 2011
  3. SINGULAIR [Concomitant]
     Active Substance: MONTELUKAST SODIUM

REACTIONS (6)
  - Drug dose omission [Not Recovered/Not Resolved]
  - Dyspnoea [Not Recovered/Not Resolved]
  - Accident [Recovered/Resolved]
  - Investigation [Unknown]
  - Fracture [Recovered/Resolved]
  - Drug ineffective [Unknown]

NARRATIVE: CASE EVENT DATE: 201402
